FAERS Safety Report 13736768 (Version 3)
Quarter: 2017Q3

REPORT INFORMATION
  Report Type: Spontaneous
  Country: IT (occurrence: IT)
  Receive Date: 20170710
  Receipt Date: 20170718
  Transmission Date: 20171127
  Serious: Yes (Other)
  Sender: FDA-Public Use
  Company Number: IT-TEVA-784360ACC

PATIENT
  Age: 84 Year
  Sex: Male

DRUGS (3)
  1. LEVOFLOXACIN. [Suspect]
     Active Substance: LEVOFLOXACIN
     Indication: ANTIBIOTIC THERAPY
     Dosage: 500 MILLIGRAM DAILY;
     Route: 048
     Dates: start: 20160801, end: 20160809
  2. AVODART - 0,5 MG CAPSULE MOLLI [Concomitant]
     Indication: PRODUCT USED FOR UNKNOWN INDICATION
  3. ALTIAZEM - 60 MG COMPRESSE [Concomitant]
     Active Substance: DILTIAZEM HYDROCHLORIDE
     Indication: PRODUCT USED FOR UNKNOWN INDICATION

REACTIONS (3)
  - Erythema [Recovering/Resolving]
  - Urinary retention [Recovering/Resolving]
  - Hypersensitivity [Recovering/Resolving]

NARRATIVE: CASE EVENT DATE: 20160809
